FAERS Safety Report 8835933 (Version 1)
Quarter: 2012Q4

REPORT INFORMATION
  Report Type: 
  Country: US (occurrence: US)
  Receive Date: 20121011
  Receipt Date: 20121011
  Transmission Date: 20130627
  Serious: No
  Sender: FDA-Public Use
  Company Number: US-PFIZER INC-2012250197

PATIENT
  Age: 66 Year
  Sex: Male
  Weight: 65.8 kg

DRUGS (4)
  1. CELEBREX [Suspect]
     Indication: ARTHRALGIA
     Dosage: 200 mg, 1x/day
     Route: 048
     Dates: start: 2001, end: 201201
  2. CELEBREX [Suspect]
     Indication: MYALGIA
  3. CELEBREX [Suspect]
     Indication: OEDEMA PERIPHERAL
  4. TYLENOL [Concomitant]
     Dosage: UNK

REACTIONS (5)
  - Activities of daily living impaired [Not Recovered/Not Resolved]
  - Myalgia [Not Recovered/Not Resolved]
  - Oedema peripheral [Not Recovered/Not Resolved]
  - Arthralgia [Not Recovered/Not Resolved]
  - Feeling abnormal [Not Recovered/Not Resolved]
